FAERS Safety Report 12919621 (Version 1)
Quarter: 2016Q4

REPORT INFORMATION
  Report Type: Spontaneous
  Country: US (occurrence: US)
  Receive Date: 20161103
  Receipt Date: 20161103
  Transmission Date: 20170207
  Serious: No
  Sender: FDA-Public Use
  Company Number: None

PATIENT
  Age: 57 Year
  Sex: Female

DRUGS (1)
  1. CAPECITABINE 500MG ACCORDA [Suspect]
     Active Substance: CAPECITABINE
     Dosage: TALE 3 TABLETS TWICE DAILY FOR 7
     Route: 048
     Dates: start: 20160901

REACTIONS (2)
  - Pain in extremity [None]
  - Erythema [None]

NARRATIVE: CASE EVENT DATE: 20161101
